FAERS Safety Report 19521967 (Version 1)
Quarter: 2021Q3

REPORT INFORMATION
  Report Type: Spontaneous
  Country: DK (occurrence: DK)
  Receive Date: 20210712
  Receipt Date: 20210712
  Transmission Date: 20211014
  Serious: Yes (Congenital Anomaly, Other)
  Sender: FDA-Public Use
  Company Number: DK-MYLANLABS-2021M1040473

PATIENT

DRUGS (1)
  1. LAMOTRIGIN ?MYLAN? [Suspect]
     Active Substance: LAMOTRIGINE
     Indication: PERSONALITY DISORDER
     Dosage: 100 MILLIGRAM, QD (STRENGTH: 100)
     Route: 064
     Dates: start: 20200323, end: 20210107

REACTIONS (3)
  - Gastroschisis [Not Recovered/Not Resolved]
  - Encephalocele [Not Recovered/Not Resolved]
  - Foetal exposure during pregnancy [Recovered/Resolved]

NARRATIVE: CASE EVENT DATE: 20201001
